FAERS Safety Report 19456285 (Version 4)
Quarter: 2023Q2

REPORT INFORMATION
  Report Type: Spontaneous
  Country: US (occurrence: US)
  Receive Date: 20210624
  Receipt Date: 20230504
  Transmission Date: 20230721
  Serious: Yes (Hospitalization)
  Sender: FDA-Public Use
  Company Number: US-BRISTOL-MYERS SQUIBB COMPANY-BMS-2021-061446

PATIENT
  Age: 69 Year
  Sex: Female

DRUGS (18)
  1. ORENCIA [Suspect]
     Active Substance: ABATACEPT
     Indication: Rheumatoid arthritis
     Dosage: 125 MILLIGRAM, QWK
     Route: 058
     Dates: start: 20171004
  2. ORENCIA [Suspect]
     Active Substance: ABATACEPT
     Dosage: 125 MILLIGRAM, QWK
     Route: 058
     Dates: start: 20190917
  3. ORENCIA [Suspect]
     Active Substance: ABATACEPT
     Dosage: 125 MILLIGRAM, QWK
     Route: 058
     Dates: start: 20220224
  4. ARAVA [Concomitant]
     Active Substance: LEFLUNOMIDE
     Route: 048
     Dates: start: 20211206
  5. CYANOCOBALAMIN [Concomitant]
     Active Substance: CYANOCOBALAMIN
     Route: 058
     Dates: start: 20220316
  6. HYDROXYCHLOROQUINE [Concomitant]
     Active Substance: HYDROXYCHLOROQUINE
     Route: 048
     Dates: start: 20220713
  7. TRAMADOL [Concomitant]
     Active Substance: TRAMADOL
     Indication: Pain
     Route: 048
     Dates: start: 20220224
  8. DICLOFENAC [Concomitant]
     Active Substance: DICLOFENAC
     Indication: Arthropathy
     Dosage: 2-4G QID TO AFFECTED JOINTS
     Route: 061
     Dates: start: 20181018
  9. ASPIRIN [Concomitant]
     Active Substance: ASPIRIN
     Route: 048
  10. ESTRADIOL [Concomitant]
     Active Substance: ESTRADIOL
  11. FINASTERIDE [Concomitant]
     Active Substance: FINASTERIDE
     Route: 048
  12. FISH OIL [Concomitant]
     Active Substance: FISH OIL
     Dosage: 300-1000MG
  13. FUROSEMIDE [Concomitant]
     Active Substance: FUROSEMIDE
  14. IRBESARTAN [Concomitant]
     Active Substance: IRBESARTAN
     Route: 048
  15. LIPITOR [Concomitant]
     Active Substance: ATORVASTATIN CALCIUM
     Route: 048
  16. NORVASC [Concomitant]
     Active Substance: AMLODIPINE BESYLATE
     Route: 048
  17. OXYBUTYNIN CHLORIDE [Concomitant]
     Active Substance: OXYBUTYNIN CHLORIDE
     Route: 048
  18. TRULICITY [Concomitant]
     Active Substance: DULAGLUTIDE
     Dosage: 1.5MG/0.5ML?EVERY WEEK IN ABDOMEN, THIGH, UPPER ARM BY ROTATING AREAS
     Route: 058

REACTIONS (3)
  - Spinal disorder [Unknown]
  - Joint swelling [Unknown]
  - Arthralgia [Unknown]
